FAERS Safety Report 9569368 (Version 2)
Quarter: 2014Q1

REPORT INFORMATION
  Report Type: Spontaneous
  Country: US (occurrence: US)
  Receive Date: 20130930
  Receipt Date: 20140225
  Transmission Date: 20141002
  Serious: No
  Sender: FDA-Public Use
  Company Number: US-AMGEN-USASP2013058076

PATIENT
  Age: 57 Year
  Sex: Female

DRUGS (4)
  1. ENBREL [Suspect]
     Indication: PSORIASIS
     Dosage: 50 MG, 2 TIMES/WK
     Route: 065
     Dates: start: 20070101
  2. ENBREL [Suspect]
     Indication: PUSTULAR PSORIASIS
  3. STELARA [Suspect]
     Indication: PSORIASIS
     Dosage: UNK
     Route: 065
  4. HUMIRA [Suspect]
     Indication: PSORIASIS
     Dosage: UNK
     Route: 065

REACTIONS (7)
  - Drug effect incomplete [Recovered/Resolved]
  - Pruritus [Recovered/Resolved]
  - Skin haemorrhage [Not Recovered/Not Resolved]
  - Scratch [Recovered/Resolved]
  - Adverse drug reaction [Not Recovered/Not Resolved]
  - Rash pustular [Recovered/Resolved]
  - Blister infected [Not Recovered/Not Resolved]
